FAERS Safety Report 11599356 (Version 1)
Quarter: 2015Q4

REPORT INFORMATION
  Report Type: Spontaneous
  Country: BR (occurrence: BR)
  Receive Date: 20151006
  Receipt Date: 20151006
  Transmission Date: 20160304
  Serious: Yes (Hospitalization, Other)
  Sender: FDA-Public Use
  Company Number: BR-ASTRAZENECA-2015SE94389

PATIENT
  Age: 64 Year
  Sex: Female
  Weight: 67 kg

DRUGS (11)
  1. HYDROCHLOROTHIAZIDE. [Suspect]
     Active Substance: HYDROCHLOROTHIAZIDE
     Indication: HYPERTENSION
     Dosage: TWO TIMES A DAY, NON AZ PRODUCT
     Route: 048
     Dates: start: 2011
  2. GLUCOSE [Concomitant]
     Active Substance: DEXTROSE
     Indication: TYPE 2 DIABETES MELLITUS
     Dosage: THREE TIMES A DAY
     Route: 048
     Dates: start: 2011
  3. ASA [Suspect]
     Active Substance: ASPIRIN
     Indication: CEREBROVASCULAR ACCIDENT PROPHYLAXIS
     Dosage: DAILY
     Route: 048
     Dates: start: 2003, end: 201505
  4. JANUVIA [Concomitant]
     Active Substance: SITAGLIPTIN PHOSPHATE
     Indication: TYPE 2 DIABETES MELLITUS
     Route: 048
     Dates: start: 201508
  5. GLIMEPIRIDE. [Concomitant]
     Active Substance: GLIMEPIRIDE
     Indication: TYPE 2 DIABETES MELLITUS
     Route: 048
     Dates: start: 2005
  6. SELOZOK [Suspect]
     Active Substance: METOPROLOL SUCCINATE
     Indication: HYPERTENSION
     Route: 048
     Dates: start: 2011
  7. LOSARTAN. [Concomitant]
     Active Substance: LOSARTAN
     Indication: HYPERTENSION
     Dosage: TWO TIMES A DAY
     Route: 048
     Dates: start: 2011
  8. SIMVASTATIN. [Concomitant]
     Active Substance: SIMVASTATIN
     Indication: BLOOD CHOLESTEROL INCREASED
     Dosage: DAILY
     Route: 048
     Dates: start: 2011
  9. METFORMIN [Suspect]
     Active Substance: METFORMIN HYDROCHLORIDE
     Indication: TYPE 2 DIABETES MELLITUS
     Dosage: 850 MG, THREE TIMES A DAY, NON AZ PRODUCT
     Route: 048
     Dates: start: 2005
  10. CALCIUM [Concomitant]
     Active Substance: CALCIUM
     Indication: OSTEOPENIA
     Dosage: DAILY
     Route: 048
     Dates: start: 201507
  11. SOMALGIN CARDIO [Concomitant]
     Active Substance: ASPIRIN\DIHYDROXYALUMINUM AMINOACETATE ANHYDROUS\MAGNESIUM CARBONATE
     Indication: CEREBROVASCULAR ACCIDENT PROPHYLAXIS
     Dosage: DAILY
     Route: 048
     Dates: start: 201505

REACTIONS (7)
  - Osteopenia [Recovering/Resolving]
  - Hypertension [Recovered/Resolved]
  - Off label use [Not Recovered/Not Resolved]
  - Blood glucose abnormal [Recovering/Resolving]
  - Nausea [Recovered/Resolved]
  - Coronary artery occlusion [Recovered/Resolved]
  - Blood cholesterol increased [Recovering/Resolving]

NARRATIVE: CASE EVENT DATE: 2011
